FAERS Safety Report 26093860 (Version 1)
Quarter: 2025Q4

REPORT INFORMATION
  Report Type: Spontaneous
  Country: US (occurrence: US)
  Receive Date: 20251126
  Receipt Date: 20251126
  Transmission Date: 20260117
  Serious: No
  Sender: GLENMARK
  Company Number: US-GLENMARK PHARMACEUTICALS-2025GMK100481

PATIENT
  Sex: Male

DRUGS (1)
  1. OXCARBAZEPINE [Suspect]
     Active Substance: OXCARBAZEPINE
     Indication: Product used for unknown indication
     Dosage: 3 DOSAGE FORM, QD (TAKING IT FOR SEVERAL YEARS)
     Route: 048

REACTIONS (3)
  - Malaise [Unknown]
  - Withdrawal syndrome [Unknown]
  - Product use issue [Unknown]
